FAERS Safety Report 5637837-7 (Version None)
Quarter: 2008Q1

REPORT INFORMATION
  Report Type: 
  Country: None (occurrence: None)
  Receive Date: 20080220
  Receipt Date: 20080204
  Transmission Date: 20080703
  Serious: Yes (Other)
  Sender: FDA-Public Use
  Company Number: 2008PV034134

PATIENT
  Sex: Female
  Weight: 136.0791 kg

DRUGS (5)
  1. SYMLIN [Suspect]
     Indication: TYPE 2 DIABETES MELLITUS
     Dosage: SC
     Route: 058
     Dates: start: 20070601, end: 20080201
  2. HUMALOG ACTOS [Concomitant]
  3. DIOVAN HCT [Concomitant]
  4. FUROSEMIDE [Concomitant]
  5. PRILOSEC [Concomitant]

REACTIONS (3)
  - ASCITES [None]
  - LIVEDO RETICULARIS [None]
  - WEIGHT INCREASED [None]
